FAERS Safety Report 8366228-3 (Version None)
Quarter: 2012Q2

REPORT INFORMATION
  Report Type: 
  Country: None (occurrence: None)
  Receive Date: 20120517
  Receipt Date: 20120510
  Transmission Date: 20120825
  Serious: Yes (Hospitalization, Other)
  Sender: FDA-Public Use
  Company Number: PHHY2012CA040499

PATIENT
  Sex: Male

DRUGS (1)
  1. ZOMETA [Suspect]
     Indication: PROSTATE CANCER METASTATIC
     Dosage: 4 MG, OT
     Route: 042
     Dates: start: 20100810

REACTIONS (4)
  - NEOPLASM MALIGNANT [None]
  - URINARY BLADDER HAEMORRHAGE [None]
  - BLADDER CANCER [None]
  - GASTRIC CANCER [None]
